FAERS Safety Report 4722989-3 (Version None)
Quarter: 2005Q3

REPORT INFORMATION
  Report Type: 
  Country: None (occurrence: None)
  Receive Date: 20050722
  Receipt Date: 20050715
  Transmission Date: 20060218
  Serious: Yes (Hospitalization, Disabling, Other)
  Sender: FDA-Public Use
  Company Number: US-MERCK-0507USA02124

PATIENT
  Age: 39 Year
  Sex: Male

DRUGS (7)
  1. VIOXX [Suspect]
     Indication: ARTHRITIS
     Route: 048
     Dates: start: 19990101, end: 20040901
  2. PREDNISOLONE [Concomitant]
     Route: 065
  3. PREVACID [Concomitant]
     Route: 065
  4. NORVASC [Concomitant]
     Route: 065
  5. PRINIVIL [Concomitant]
     Route: 065
  6. LAMICTAL [Concomitant]
     Route: 065
  7. ATENOLOL [Concomitant]
     Route: 065

REACTIONS (11)
  - ABDOMINAL PAIN UPPER [None]
  - DYSPEPSIA [None]
  - FLUID RETENTION [None]
  - HEPATOCELLULAR DAMAGE [None]
  - HYPERTENSION [None]
  - INSOMNIA [None]
  - MOOD ALTERED [None]
  - OVERDOSE [None]
  - RENAL DISORDER [None]
  - STOMACH DISCOMFORT [None]
  - WEIGHT INCREASED [None]
